FAERS Safety Report 7296772-1 (Version None)
Quarter: 2011Q1

REPORT INFORMATION
  Report Type: 
  Country: None (occurrence: None)
  Receive Date: 20110216
  Receipt Date: 20110209
  Transmission Date: 20110831
  Serious: Yes (Hospitalization)
  Sender: FDA-Public Use
  Company Number: B0684543A

PATIENT
  Sex: Female
  Weight: 77 kg

DRUGS (12)
  1. THALIDOMIDE [Suspect]
     Indication: MULTIPLE MYELOMA
     Dosage: 200MG PER DAY
     Route: 048
     Dates: start: 20091022
  2. CELIPROLOL [Concomitant]
     Dates: end: 20100901
  3. LISINOPRIL [Concomitant]
  4. PRAVASTATIN [Concomitant]
  5. XANAX [Concomitant]
  6. MELPHALAN [Suspect]
     Indication: MULTIPLE MYELOMA
     Dosage: 150MG PER DAY
     Route: 065
     Dates: start: 20091022
  7. OROKEN [Concomitant]
  8. ASPIRIN [Concomitant]
     Indication: PROPHYLAXIS
  9. OXYCONTIN [Concomitant]
  10. PREDNISOLONE [Suspect]
     Indication: MULTIPLE MYELOMA
     Dosage: 20MG PER DAY
     Route: 065
     Dates: start: 20091022
  11. TAVANIC [Concomitant]
  12. MOTILIUM [Concomitant]

REACTIONS (13)
  - BUNDLE BRANCH BLOCK RIGHT [None]
  - BLOOD PRESSURE SYSTOLIC INCREASED [None]
  - OXYGEN SATURATION DECREASED [None]
  - WHITE BLOOD CELL COUNT DECREASED [None]
  - PRESYNCOPE [None]
  - ATRIOVENTRICULAR BLOCK FIRST DEGREE [None]
  - BRADYCARDIA [None]
  - LEFT ATRIAL DILATATION [None]
  - HAEMOGLOBIN DECREASED [None]
  - SYNCOPE [None]
  - PLATELET COUNT DECREASED [None]
  - VOMITING [None]
  - BLOOD POTASSIUM DECREASED [None]
